FAERS Safety Report 12252092 (Version 1)
Quarter: 2016Q2

REPORT INFORMATION
  Report Type: Spontaneous
  Country: US (occurrence: None)
  Receive Date: 20160408
  Receipt Date: 20160408
  Transmission Date: 20160815
  Serious: Yes (Life-Threatening, Disabling)
  Sender: FDA-Public Use
  Company Number: None

PATIENT
  Age: 69 Year
  Sex: Female
  Weight: 62.6 kg

DRUGS (11)
  1. LEXAPRO [Concomitant]
     Active Substance: ESCITALOPRAM OXALATE
  2. NEXIUM [Concomitant]
     Active Substance: ESOMEPRAZOLE MAGNESIUM
  3. AMBIEN [Concomitant]
     Active Substance: ZOLPIDEM TARTRATE
  4. BACTRIM [Concomitant]
     Active Substance: SULFAMETHOXAZOLE\TRIMETHOPRIM
  5. ASPRIN [Concomitant]
     Active Substance: ASPIRIN
  6. PLAVIX [Concomitant]
     Active Substance: CLOPIDOGREL BISULFATE
  7. ATENOLOL. [Suspect]
     Active Substance: ATENOLOL
  8. IBUPROFEN. [Concomitant]
     Active Substance: IBUPROFEN
  9. BUTRANS [Suspect]
     Active Substance: BUPRENORPHINE
     Indication: ARTHRALGIA
     Dosage: 15MCG/HOUR 1 PATCH A WEEK ON THE SKIN
     Route: 061
     Dates: start: 20160324, end: 20160325
  10. ZOCOR [Concomitant]
     Active Substance: SIMVASTATIN
  11. THLENOL [Concomitant]

REACTIONS (12)
  - Vomiting [None]
  - Dry mouth [None]
  - Hyperhidrosis [None]
  - Pruritus generalised [None]
  - Decreased appetite [None]
  - Ageusia [None]
  - Asthenia [None]
  - Dysphonia [None]
  - Somnolence [None]
  - Chills [None]
  - Gait disturbance [None]
  - Vertigo [None]

NARRATIVE: CASE EVENT DATE: 20160324
